FAERS Safety Report 6115946-6 (Version None)
Quarter: 2009Q1

REPORT INFORMATION
  Report Type: 
  Country: None (occurrence: None)
  Receive Date: 20090314
  Receipt Date: 20081208
  Transmission Date: 20090719
  Serious: No
  Sender: FDA-Public Use
  Company Number: PR-ABBOTT-08P-131-0490579-00

PATIENT
  Sex: Female
  Weight: 105.78 kg

DRUGS (8)
  1. HUMIRA [Suspect]
     Indication: RHEUMATOID ARTHRITIS
     Route: 058
     Dates: end: 20081101
  2. HYZAAR [Concomitant]
     Indication: HYPERTENSION
     Dosage: 100/25MG DAILY
     Route: 048
  3. FOLIC ACID [Concomitant]
     Indication: VITAMIN SUPPLEMENTATION
     Route: 048
  4. CELECOXIB [Concomitant]
     Indication: RHEUMATOID ARTHRITIS
     Route: 048
  5. ULTRACET [Concomitant]
     Indication: RHEUMATOID ARTHRITIS
     Dosage: EVERY 4-6 HOURS
     Route: 048
  6. KETOROLAC TROMETHAMINE [Concomitant]
     Indication: PREMENSTRUAL SYNDROME
     Route: 048
  7. KETOROLAC TROMETHAMINE [Concomitant]
     Indication: MENSTRUAL DISORDER
     Route: 050
  8. ETANERCEPT [Concomitant]
     Indication: RHEUMATOID ARTHRITIS
     Route: 058

REACTIONS (4)
  - ERYTHEMA [None]
  - HYPERSENSITIVITY [None]
  - INJECTION SITE ERYTHEMA [None]
  - INJECTION SITE RASH [None]
